FAERS Safety Report 8956422 (Version 1)
Quarter: 2012Q4

REPORT INFORMATION
  Report Type: 
  Country: FR (occurrence: FR)
  Receive Date: 20121210
  Receipt Date: 20121210
  Transmission Date: 20130627
  Serious: Yes (Hospitalization)
  Sender: FDA-Public Use
  Company Number: FR-ASTRAZENECA-2012SE90409

PATIENT
  Age: 27759 Day
  Sex: Male

DRUGS (9)
  1. INEXIUM [Suspect]
     Route: 048
  2. PRAVASTATINE [Concomitant]
  3. ENALAPRIL [Concomitant]
  4. ZALDIAR [Concomitant]
  5. PLAVIX [Concomitant]
  6. CHONDROSULF [Concomitant]
  7. FUROSEMIDE [Concomitant]
  8. ZYLORIC [Concomitant]
  9. NATIDROFURYL [Concomitant]

REACTIONS (3)
  - Tetany [Recovered/Resolved]
  - Hypocalcaemia [Recovered/Resolved]
  - Hypomagnesaemia [Recovered/Resolved]
